APPROVED DRUG PRODUCT: SULFINPYRAZONE
Active Ingredient: SULFINPYRAZONE
Strength: 100MG
Dosage Form/Route: TABLET;ORAL
Application: A088933 | Product #001
Applicant: PAR PHARMACEUTICAL INC
Approved: Sep 6, 1985 | RLD: No | RS: No | Type: DISCN